FAERS Safety Report 11316518 (Version 1)
Quarter: 2015Q3

REPORT INFORMATION
  Report Type: Spontaneous
  Country: US (occurrence: US)
  Receive Date: 20150728
  Receipt Date: 20150728
  Transmission Date: 20151125
  Serious: Yes (Other)
  Sender: FDA-Public Use
  Company Number: US-JNJFOC-20150716552

PATIENT
  Age: 52 Year
  Sex: Male

DRUGS (4)
  1. RIBAVIRIN. [Concomitant]
     Active Substance: RIBAVIRIN
     Route: 065
  2. OLYSIO [Suspect]
     Active Substance: SIMEPREVIR
     Indication: CHRONIC HEPATITIS C
     Route: 048
  3. HARVONI [Concomitant]
     Active Substance: LEDIPASVIR\SOFOSBUVIR
     Route: 065
  4. SOFOSBUVIR [Suspect]
     Active Substance: SOFOSBUVIR
     Indication: CHRONIC HEPATITIS C
     Route: 048

REACTIONS (2)
  - Hepatitis C [Unknown]
  - Drug ineffective [Unknown]
